FAERS Safety Report 24238704 (Version 1)
Quarter: 2024Q3

REPORT INFORMATION
  Report Type: Spontaneous
  Country: US (occurrence: US)
  Receive Date: 20240822
  Receipt Date: 20240822
  Transmission Date: 20241017
  Serious: No
  Sender: PFIZER
  Company Number: US-PFIZER INC-202400240114

PATIENT
  Age: 77 Year
  Sex: Female

DRUGS (3)
  1. TUKYSA [Suspect]
     Active Substance: TUCATINIB
     Dosage: TWO 50-MG TABLETS, TWICE A DAY
  2. KEPPRA [Concomitant]
     Active Substance: LEVETIRACETAM
     Dosage: UNK
  3. MIRTAZAPINE [Concomitant]
     Active Substance: MIRTAZAPINE
     Dosage: UNK

REACTIONS (2)
  - Fatigue [Unknown]
  - Off label use [Unknown]
